FAERS Safety Report 20926468 (Version 2)
Quarter: 2022Q2

REPORT INFORMATION
  Report Type: Report from Study
  Country: US (occurrence: None)
  Receive Date: 20220607
  Receipt Date: 20220610
  Transmission Date: 20220721
  Serious: Yes (Death)
  Sender: FDA-Public Use
  Company Number: US-ROCHE-3111165

PATIENT
  Age: 73 Year
  Sex: Male
  Weight: 103.6 kg

DRUGS (14)
  1. ATEZOLIZUMAB [Suspect]
     Active Substance: ATEZOLIZUMAB
     Indication: Hepatocellular carcinoma
     Dosage: START DATE OF MOST RECENT DOSE OF STUDY DRUG PRIOR TO AE 30-JUN-2021
     Route: 041
     Dates: start: 20200617
  2. BEVACIZUMAB [Suspect]
     Active Substance: BEVACIZUMAB
     Indication: Hepatocellular carcinoma
     Dosage: START DATE OF MOST RECENT DOSE OF STUDY DRUG PRIOR TO AE 30-SEP-2020
     Route: 042
     Dates: start: 20200617
  3. LASIX [Concomitant]
     Active Substance: FUROSEMIDE
     Dates: start: 2012
  4. POTASSIUM CHLORIDE [Concomitant]
     Active Substance: POTASSIUM CHLORIDE
     Dates: start: 2019
  5. KETAMINE [Concomitant]
     Active Substance: KETAMINE
     Dates: start: 202001
  6. SPIRONOLACTONE [Concomitant]
     Active Substance: SPIRONOLACTONE
     Dates: start: 2010
  7. TYLENOL [Concomitant]
     Active Substance: ACETAMINOPHEN
     Dates: start: 20200728
  8. TRAMADOL [Concomitant]
     Active Substance: TRAMADOL
     Dates: start: 20200825
  9. BACLOFEN [Concomitant]
     Active Substance: BACLOFEN
     Dates: start: 20200825
  10. CEFAZOLIN [Concomitant]
     Active Substance: CEFAZOLIN
     Dates: start: 20201005
  11. RIFAXIMIN [Concomitant]
     Active Substance: RIFAXIMIN
     Dates: start: 20201008
  12. CRANBERRY [Concomitant]
     Active Substance: CRANBERRY
     Dates: start: 202102
  13. TAMSULOSIN [Concomitant]
     Active Substance: TAMSULOSIN
     Dates: start: 20210305
  14. CHOLESTYRAMINE [Concomitant]
     Active Substance: CHOLESTYRAMINE
     Dates: start: 20210523

REACTIONS (2)
  - Haemoperitoneum [Fatal]
  - Biliary sepsis [Fatal]

NARRATIVE: CASE EVENT DATE: 20220530
